FAERS Safety Report 7369700-8 (Version None)
Quarter: 2011Q1

REPORT INFORMATION
  Report Type: 
  Country: None (occurrence: None)
  Receive Date: 20110323
  Receipt Date: 20101018
  Transmission Date: 20110831
  Serious: Yes (Hospitalization, Other)
  Sender: FDA-Public Use
  Company Number: US-BAYER-201020268NA

PATIENT
  Sex: Female
  Weight: 95.238 kg

DRUGS (10)
  1. OCELLA [Suspect]
     Indication: CONTRACEPTION
     Dosage: UNK
     Dates: start: 20080101, end: 20090101
  2. METRONIDAZOLE [Concomitant]
     Dosage: 500 MG, BID
  3. YASMIN [Suspect]
     Indication: CONTRACEPTION
     Dosage: UNK UNK, QD
     Route: 048
     Dates: start: 20060101, end: 20080101
  4. OCELLA [Suspect]
     Indication: PREMENSTRUAL SYNDROME
  5. NAPROXEN [Concomitant]
     Indication: MUSCLE SPASMS
     Dosage: UNK UNK, PRN
     Dates: start: 20020101
  6. YASMIN [Suspect]
     Indication: MENSTRUATION IRREGULAR
  7. PHENTERMINE [Concomitant]
     Dosage: UNK
     Dates: start: 20060101, end: 20060203
  8. YASMIN [Suspect]
     Indication: PREMENSTRUAL SYNDROME
  9. TERAZOL 7 [Concomitant]
  10. OCELLA [Suspect]
     Indication: MENSTRUATION IRREGULAR

REACTIONS (13)
  - CHOLELITHIASIS [None]
  - DEHYDRATION [None]
  - GASTRITIS [None]
  - FATIGUE [None]
  - GALLBLADDER PAIN [None]
  - DIABETES MELLITUS [None]
  - CHOLECYSTITIS CHRONIC [None]
  - DIABETES MELLITUS INADEQUATE CONTROL [None]
  - PANCREATITIS [None]
  - GALLBLADDER DISORDER [None]
  - KETOSIS [None]
  - SINUS TACHYCARDIA [None]
  - GLYCOSURIA [None]
